FAERS Safety Report 19892738 (Version 1)
Quarter: 2021Q3

REPORT INFORMATION
  Report Type: Spontaneous
  Country: HR (occurrence: HR)
  Receive Date: 20210928
  Receipt Date: 20210928
  Transmission Date: 20211014
  Serious: Yes (Death, Hospitalization, Other)
  Sender: FDA-Public Use
  Company Number: HR-009507513-2109HRV006425

PATIENT
  Age: 45 Year
  Sex: Female

DRUGS (1)
  1. PREVYMIS [Suspect]
     Active Substance: LETERMOVIR
     Dosage: UNK
     Dates: start: 20191213, end: 20200316

REACTIONS (9)
  - Cytomegalovirus infection reactivation [Unknown]
  - Herpes zoster reactivation [Unknown]
  - Pneumonia cytomegaloviral [Unknown]
  - Cytomegalovirus infection reactivation [Unknown]
  - Meningitis [Unknown]
  - Haemoptysis [Fatal]
  - Urinary tract infection [Unknown]
  - Graft versus host disease in gastrointestinal tract [Unknown]
  - Pneumonia klebsiella [Unknown]

NARRATIVE: CASE EVENT DATE: 2020
